FAERS Safety Report 7728581-0 (Version None)
Quarter: 2011Q3

REPORT INFORMATION
  Report Type: 
  Country: None (occurrence: None)
  Receive Date: 20110830
  Receipt Date: 20110819
  Transmission Date: 20111222
  Serious: Yes (Other)
  Sender: FDA-Public Use
  Company Number: TPA2011A05134

PATIENT
  Sex: Male

DRUGS (1)
  1. ACTOS [Suspect]
     Dates: start: 20020101

REACTIONS (1)
  - BLADDER CANCER [None]
